FAERS Safety Report 7784433-1 (Version None)
Quarter: 2011Q3

REPORT INFORMATION
  Report Type: 
  Country: None (occurrence: None)
  Receive Date: 20110928
  Receipt Date: 20110920
  Transmission Date: 20111222
  Serious: No
  Sender: FDA-Public Use
  Company Number: US-BAYER-2011-089244

PATIENT
  Age: 29 Year
  Sex: Female

DRUGS (2)
  1. YAZ [Suspect]
  2. YAZ [Suspect]
     Dosage: UNK
     Dates: start: 20110101

REACTIONS (1)
  - BREAST DISCHARGE [None]
